FAERS Safety Report 24921927 (Version 1)
Quarter: 2025Q1

REPORT INFORMATION
  Report Type: Spontaneous
  Country: GB (occurrence: GB)
  Receive Date: 20250204
  Receipt Date: 20250204
  Transmission Date: 20250409
  Serious: Yes (Life-Threatening, Hospitalization, Other)
  Sender: RANBAXY
  Company Number: GB-SUN PHARMACEUTICAL INDUSTRIES LTD-2025R1-491801

PATIENT
  Age: 11 Month
  Sex: Male

DRUGS (1)
  1. DIGOXIN [Suspect]
     Active Substance: DIGOXIN
     Indication: Prophylaxis
     Route: 065

REACTIONS (3)
  - Ventricular tachycardia [Unknown]
  - Toxicity to various agents [Unknown]
  - Ventricular arrhythmia [Unknown]
